FAERS Safety Report 24121219 (Version 2)
Quarter: 2024Q3

REPORT INFORMATION
  Report Type: Report from Study
  Country: US (occurrence: US)
  Receive Date: 20240722
  Receipt Date: 20240726
  Transmission Date: 20241017
  Serious: Yes (Hospitalization)
  Sender: AMGEN
  Company Number: US-AMGEN-USASP2024141716

PATIENT
  Age: 6 Year
  Sex: Male

DRUGS (4)
  1. ACTIMMUNE [Suspect]
     Active Substance: INTERFERON GAMMA-1B
     Indication: Chronic granulomatous disease
     Dosage: 40 MICROGRAM, 3 TIMES/WK (100 MCG/0.5 ML)
     Route: 058
  2. ACTIMMUNE [Suspect]
     Active Substance: INTERFERON GAMMA-1B
     Indication: Neutrophil function disorder
     Dosage: 12 MICROGRAM, 3 TIMES/WK
     Route: 058
  3. BACTRIM [Concomitant]
     Active Substance: SULFAMETHOXAZOLE\TRIMETHOPRIM
     Dosage: UNK 400-80 MG
     Route: 065
  4. SPORANOX [Concomitant]
     Active Substance: ITRACONAZOLE
     Dosage: 10 MILLIGRAM PER MILLILITRE
     Route: 065

REACTIONS (2)
  - Unevaluable event [Not Recovered/Not Resolved]
  - Therapy interrupted [Unknown]
